FAERS Safety Report 5634203-5 (Version None)
Quarter: 2008Q1

REPORT INFORMATION
  Report Type: 
  Country: None (occurrence: None)
  Receive Date: 20080219
  Receipt Date: 20080204
  Transmission Date: 20080703
  Serious: Yes (Other)
  Sender: FDA-Public Use
  Company Number: ADE2008-0127

PATIENT
  Age: 54 Year
  Sex: Female

DRUGS (4)
  1. SIMVASTATIN [Suspect]
     Dosage: 20 MG - PO
     Route: 048
     Dates: start: 20061201
  2. CLOBAZAM [Suspect]
     Dosage: 10MG 1TAB TID
  3. MIXTARD HUMAN 70/30 [Suspect]
     Dosage: 32 UNITS DAILY
  4. SODIUM VALPROATE 100MG [Suspect]
     Dosage: 200MG - QD

REACTIONS (2)
  - CONDITION AGGRAVATED [None]
  - CONVULSION [None]
